FAERS Safety Report 5399238-9 (Version None)
Quarter: 2007Q3

REPORT INFORMATION
  Report Type: 
  Country: None (occurrence: None)
  Receive Date: 20070727
  Receipt Date: 20070723
  Transmission Date: 20080115
  Serious: Yes (Other)
  Sender: FDA-Public Use
  Company Number: A0660549A

PATIENT
  Age: 36 Year
  Sex: Female
  Weight: 69.1 kg

DRUGS (2)
  1. LAMICTAL [Suspect]
     Dosage: 75MG TWICE PER DAY
     Route: 048
     Dates: start: 20051101
  2. NO CONCURRENT MEDICATION [Concomitant]

REACTIONS (4)
  - ABORTION SPONTANEOUS [None]
  - DRUG EXPOSURE DURING PREGNANCY [None]
  - URINE HUMAN CHORIONIC GONADOTROPIN DECREASED [None]
  - VAGINAL HAEMORRHAGE [None]
